FAERS Safety Report 4695060-7 (Version None)
Quarter: 2005Q2

REPORT INFORMATION
  Report Type: 
  Country: None (occurrence: None)
  Receive Date: 20050617
  Receipt Date: 20050606
  Transmission Date: 20051028
  Serious: Yes (Life-Threatening, Hospitalization, Other)
  Sender: FDA-Public Use
  Company Number: 2005077453

PATIENT
  Age: 66 Year
  Sex: Male

DRUGS (18)
  1. ATARAX [Suspect]
     Indication: ILL-DEFINED DISORDER
     Dosage: (1 IN 1 D), ORAL
     Route: 048
     Dates: start: 20050310
  2. PANTOPRAZOLE SODIUM [Suspect]
     Indication: ILL-DEFINED DISORDER
     Dosage: ORAL
     Route: 048
     Dates: start: 20050310, end: 20050326
  3. ACETAMINOPHEN [Suspect]
     Indication: ILL-DEFINED DISORDER
     Dosage: ORAL
     Route: 048
     Dates: start: 20050223
  4. IOPAMIDOL [Suspect]
     Indication: COMPUTERISED TOMOGRAM
     Dosage: ONE TIME DOSE (ON 23FEB2005 AND 22MAR2005), INTRAVENOUS
     Route: 042
     Dates: start: 20050223, end: 20050322
  5. AUGMENTIN '125' [Suspect]
     Indication: RESPIRATORY DISORDER
     Dosage: ORAL
     Route: 048
     Dates: start: 20050308, end: 20050321
  6. MICROPAQUE ^GUERBET^ (BARIUM SULFATE) [Suspect]
     Indication: COMPUTERISED TOMOGRAM
     Dosage: ONE TIME DOSE (ON 22MAR2005), ORAL
     Route: 048
     Dates: start: 20050322, end: 20050322
  7. OFLOXACIN [Concomitant]
  8. ZYLORIC ^GLAXO WELLCOME^ (ALLOPURINOL) [Concomitant]
  9. PRAVASTATIN [Concomitant]
  10. COVERSYL (PERINDOPRIL) [Concomitant]
  11. FORLAX (MACROGOL) [Concomitant]
  12. EDUCTYL (POTASSIUM BITARTRATE, SODIUM BICARBONATE) [Concomitant]
  13. DURAGESIC (FENTANYL) [Concomitant]
  14. LOVENOX [Concomitant]
  15. CORTANCYL (PREDNISONE) [Concomitant]
  16. MORPHINE SULFATE [Concomitant]
  17. NUTRISON (CARBOHYDRATES NOS, LIPIDS NOS, PROTEINS NOS) [Concomitant]
  18. CLAVULANATE POTASSIUM (CLAVULANATE POTASSIUM) [Concomitant]

REACTIONS (13)
  - ATRIAL FIBRILLATION [None]
  - BLOOD FIBRINOGEN INCREASED [None]
  - BLOOD GASES ABNORMAL [None]
  - DISEASE RECURRENCE [None]
  - EPIDERMAL NECROSIS [None]
  - GENERAL PHYSICAL HEALTH DETERIORATION [None]
  - HAEMOGLOBIN DECREASED [None]
  - LUNG INFECTION [None]
  - PLATELET COUNT INCREASED [None]
  - PLEURAL EFFUSION [None]
  - PYREXIA [None]
  - TOXIC EPIDERMAL NECROLYSIS [None]
  - TROPONIN T INCREASED [None]
